FAERS Safety Report 22099996 (Version 1)
Quarter: 2023Q1

REPORT INFORMATION
  Report Type: Report from Study
  Country: US (occurrence: US)
  Receive Date: 20230315
  Receipt Date: 20230315
  Transmission Date: 20230418
  Serious: Yes (Other)
  Sender: FDA-Public Use
  Company Number: US-BIOGEN-2023BI01192442

PATIENT
  Sex: Female

DRUGS (1)
  1. TYSABRI [Suspect]
     Active Substance: NATALIZUMAB
     Indication: Paternal exposure timing unspecified
     Route: 050
     Dates: start: 202004

REACTIONS (2)
  - Decreased embryo viability [Unknown]
  - Paternal exposure before pregnancy [Unknown]
